FAERS Safety Report 4814500-3 (Version None)
Quarter: 2005Q4

REPORT INFORMATION
  Report Type: 
  Country: None (occurrence: None)
  Receive Date: 20051028
  Receipt Date: 20051026
  Transmission Date: 20060501
  Serious: Yes (Hospitalization)
  Sender: FDA-Public Use
  Company Number: CA-MERCK-0510CAN00244

PATIENT
  Sex: Female

DRUGS (1)
  1. MAXALT [Suspect]
     Route: 048

REACTIONS (1)
  - HEPATITIS [None]
